FAERS Safety Report 5808962-2 (Version None)
Quarter: 2008Q3

REPORT INFORMATION
  Report Type: 
  Country: None (occurrence: None)
  Receive Date: 20080710
  Receipt Date: 20080710
  Transmission Date: 20090109
  Serious: No
  Sender: FDA-Public Use
  Company Number: None

PATIENT
  Age: 82 Year
  Sex: Female
  Weight: 52.1637 kg

DRUGS (1)
  1. ALDARA [Suspect]
     Indication: ACTINIC KERATOSIS
     Dosage: ONE PACKET 3 TIMES A WEEK TOP
     Route: 061
     Dates: start: 20080212, end: 20080408

REACTIONS (2)
  - ALOPECIA [None]
  - ERYTHEMA [None]
